FAERS Safety Report 5519682-6 (Version None)
Quarter: 2007Q4

REPORT INFORMATION
  Report Type: 
  Country: None (occurrence: None)
  Receive Date: 20071116
  Receipt Date: 20071107
  Transmission Date: 20080405
  Serious: Yes (Hospitalization)
  Sender: FDA-Public Use
  Company Number: JP-SANOFI-SYNTHELABO-A01200712772

PATIENT
  Age: 65 Year
  Sex: Female

DRUGS (3)
  1. OXALIPLATIN [Suspect]
     Indication: COLON CANCER
     Dosage: DAY 1 UNK
     Route: 042
     Dates: start: 20071010, end: 20071010
  2. FLUOROURACIL [Suspect]
     Dosage: BOLUS THEN CONTINUOUS INFUSION ON DAY 1 AND 2 UNK
     Route: 042
     Dates: start: 20071010, end: 20071011
  3. LEUCOVORIN CALCIUM [Suspect]
     Dosage: DAY 1 AND 2 UNK
     Route: 042
     Dates: start: 20071010, end: 20071011

REACTIONS (2)
  - DISSEMINATED INTRAVASCULAR COAGULATION [None]
  - FEBRILE NEUTROPENIA [None]
